FAERS Safety Report 4944388-1 (Version None)
Quarter: 2006Q1

REPORT INFORMATION
  Report Type: 
  Country: None (occurrence: None)
  Receive Date: 20060315
  Receipt Date: 20051207
  Transmission Date: 20060701
  Serious: Yes (Other)
  Sender: FDA-Public Use
  Company Number: US-MERCK-0512USA01379

PATIENT
  Age: 65 Year
  Sex: Female
  Weight: 89 kg

DRUGS (14)
  1. VIOXX [Suspect]
     Indication: ARTHRITIS
     Route: 048
     Dates: start: 20010801, end: 20040824
  2. CENTRUM [Concomitant]
     Route: 065
  3. CALCIUM (UNSPECIFIED) [Concomitant]
     Route: 065
  4. AMITRIPTYLINE HYDROCHLORIDE [Concomitant]
     Route: 065
  5. VALIUM [Concomitant]
     Route: 065
  6. DOXAZOSIN MESYLATE [Concomitant]
     Route: 065
  7. PLAVIX [Concomitant]
     Route: 065
  8. ASPIRIN [Concomitant]
     Route: 065
  9. EVISTA [Concomitant]
     Route: 065
  10. COZAAR [Concomitant]
     Route: 065
  11. HYDROCHLOROTHIAZIDE [Concomitant]
     Route: 065
  12. [THERAPY UNSPECIFIED] [Concomitant]
     Route: 065
  13. VITAMIN E [Concomitant]
     Route: 065
  14. FIBERCON [Concomitant]
     Route: 065

REACTIONS (2)
  - CORONARY ANGIOPLASTY [None]
  - EXERCISE TOLERANCE DECREASED [None]
